FAERS Safety Report 8580562 (Version 6)
Quarter: 2012Q4

REPORT INFORMATION
  Report Type: 
  Country: DE (occurrence: DE)
  Receive Date: 20120525
  Receipt Date: 20121108
  Transmission Date: 20130627
  Serious: Yes (Life-Threatening)
  Sender: FDA-Public Use
  Company Number: DE-BAYER-2012-050018

PATIENT
  Age: 6 Week
  Sex: Male
  Weight: 5.13 kg

DRUGS (8)
  1. GADOBUTROL [Suspect]
     Indication: MRI
     Dosage: 1 ml/ sec
     Route: 042
     Dates: start: 20120521, end: 20120521
  2. AMOXICILLIN [Concomitant]
     Indication: PYELONEPHRITIS
     Dosage: Daily dose 50 mg
     Route: 048
     Dates: start: 201204
  3. VIGANTOLETTEN [Concomitant]
     Indication: PROPHYLAXIS
     Dosage: Daily dose 500 iu
     Route: 048
     Dates: start: 201204
  4. ELECTROLYTE SOLUTIONS [Concomitant]
     Indication: PARENTERAL REHYDRATION
     Dosage: 450 ml, ONCE
     Route: 042
     Dates: start: 20120521, end: 20120521
  5. SUFENTA [Concomitant]
     Indication: ANAESTHESIA PROCEDURE
     Dosage: Daily dose 1 DF
     Route: 042
     Dates: start: 20120521, end: 20120521
  6. DISOPRIVAN [Concomitant]
     Indication: ANAESTHESIA PROCEDURE
     Dosage: Daily dose 50 mg
     Route: 042
     Dates: start: 20120521, end: 20120521
  7. ESMERON [Concomitant]
     Indication: MUSCLE RELAXANT
     Dosage: Daily dose 15 mg
     Route: 042
     Dates: start: 20120521, end: 20120521
  8. SEVOFLURANE [Concomitant]
     Indication: ANAESTHESIA PROCEDURE
     Dosage: UNK
     Route: 055
     Dates: start: 20120521, end: 20120521

REACTIONS (2)
  - Respiratory failure [Recovered/Resolved]
  - Pyrexia [Recovered/Resolved]
